FAERS Safety Report 14385839 (Version 4)
Quarter: 2018Q2

REPORT INFORMATION
  Report Type: Report from Study
  Country: IL (occurrence: IL)
  Receive Date: 20180115
  Receipt Date: 20180419
  Transmission Date: 20180711
  Serious: Yes (Hospitalization)
  Sender: FDA-Public Use
  Company Number: IL-EISAI MEDICAL RESEARCH-EC-2018-034921

PATIENT
  Age: 76 Year
  Sex: Male
  Weight: 85.7 kg

DRUGS (6)
  1. NORMITEN [Concomitant]
     Active Substance: ATENOLOL
  2. LENVATINIB [Suspect]
     Active Substance: LENVATINIB
     Indication: RENAL CELL CARCINOMA
     Route: 048
     Dates: start: 20171224, end: 20180107
  3. LOSEC [Concomitant]
     Active Substance: OMEPRAZOLE
  4. EVEROLIMUS. [Suspect]
     Active Substance: EVEROLIMUS
     Indication: RENAL CELL CARCINOMA
     Route: 048
     Dates: start: 20171224, end: 20180107
  5. DUODART [Concomitant]
     Active Substance: DUTASTERIDE\TAMSULOSIN
  6. TEVAPIRIN [Concomitant]

REACTIONS (1)
  - Renal failure [Recovered/Resolved]

NARRATIVE: CASE EVENT DATE: 20180108
